FAERS Safety Report 6478265-4 (Version None)
Quarter: 2009Q4

REPORT INFORMATION
  Report Type: 
  Country: None (occurrence: None)
  Receive Date: 20091119
  Receipt Date: 20091104
  Transmission Date: 20100525
  Serious: Yes (Hospitalization, Other)
  Sender: FDA-Public Use
  Company Number: 2009SP028265

PATIENT
  Sex: Female
  Weight: 75.7 kg

DRUGS (4)
  1. IMPLANON [Suspect]
     Indication: CONTRACEPTION
     Dosage: 1 DF;
     Dates: start: 20030201, end: 20060201
  2. IMPLANON [Suspect]
     Indication: CONTRACEPTION
     Dosage: 1 DF;
     Dates: start: 20060201, end: 20090201
  3. IMPLANON [Suspect]
     Indication: CONTRACEPTION
     Dosage: 1 DF;
     Dates: start: 20090201
  4. IMPLANON [Suspect]

REACTIONS (4)
  - ASCITES [None]
  - NEPHROTIC SYNDROME [None]
  - OVARIAN CYST [None]
  - WEIGHT INCREASED [None]
